FAERS Safety Report 5370471-5 (Version None)
Quarter: 2007Q2

REPORT INFORMATION
  Report Type: 
  Country: None (occurrence: None)
  Receive Date: 20070626
  Receipt Date: 20070301
  Transmission Date: 20071010
  Serious: No
  Sender: FDA-Public Use
  Company Number: US-AMGEN-US213350

PATIENT
  Sex: Female

DRUGS (6)
  1. ARANESP [Suspect]
     Indication: RENAL FAILURE CHRONIC
     Route: 065
     Dates: start: 20070122, end: 20070122
  2. KEFLEX [Concomitant]
     Route: 065
  3. ATENOLOL [Concomitant]
     Route: 065
  4. HYZAAR [Concomitant]
     Route: 065
  5. ALFALFA [Concomitant]
     Route: 065
  6. IRON [Concomitant]
     Route: 065
     Dates: end: 20070101

REACTIONS (2)
  - ASTHENIA [None]
  - BRADYPHRENIA [None]
